FAERS Safety Report 9973767 (Version 1)
Quarter: 2014Q1

REPORT INFORMATION
  Report Type: Spontaneous
  Country: US (occurrence: US)
  Receive Date: 20140306
  Receipt Date: 20140306
  Transmission Date: 20141002
  Serious: No
  Sender: FDA-Public Use
  Company Number: US-GILEAD-2012-0063659

PATIENT
  Sex: Female

DRUGS (3)
  1. VIREAD [Suspect]
     Indication: HEPATITIS B
     Dosage: 2 DF, QD
     Route: 048
     Dates: start: 20121022, end: 20121022
  2. VIREAD [Suspect]
     Dosage: 1 DF, QD
     Route: 048
     Dates: end: 20121021
  3. VIREAD [Suspect]
     Dosage: 1 DF, QD
     Route: 048
     Dates: start: 20121023

REACTIONS (3)
  - Muscle fatigue [Not Recovered/Not Resolved]
  - Abdominal discomfort [Not Recovered/Not Resolved]
  - Accidental overdose [Recovered/Resolved]
